FAERS Safety Report 4937266-5 (Version None)
Quarter: 2006Q1

REPORT INFORMATION
  Report Type: 
  Country: None (occurrence: None)
  Receive Date: 20060307
  Receipt Date: 20060307
  Transmission Date: 20060701
  Serious: Yes (Hospitalization)
  Sender: FDA-Public Use
  Company Number: None

PATIENT
  Age: 58 Year
  Sex: Female
  Weight: 65.7716 kg

DRUGS (1)
  1. AVELOX [Suspect]
     Indication: INFECTION
     Dosage: 1 QD PO
     Route: 048
     Dates: start: 20050328, end: 20050328

REACTIONS (4)
  - ABASIA [None]
  - ANXIETY [None]
  - ASTHENIA [None]
  - DYSPNOEA [None]
